FAERS Safety Report 15604341 (Version 2)
Quarter: 2018Q4

REPORT INFORMATION
  Report Type: Spontaneous
  Country: US (occurrence: US)
  Receive Date: 20181110
  Receipt Date: 20181113
  Transmission Date: 20190205
  Serious: No
  Sender: FDA-Public Use
  Company Number: US-TEVA-2018-US-971529

PATIENT
  Sex: Male

DRUGS (1)
  1. LIDOCPAT-A [Suspect]
     Active Substance: LIDOCAINE
     Indication: BACK PAIN
     Route: 061

REACTIONS (4)
  - Wrong technique in product usage process [Unknown]
  - Dysgeusia [Unknown]
  - Tremor [Unknown]
  - Hypertension [Unknown]

NARRATIVE: CASE EVENT DATE: 201810
